FAERS Safety Report 4960315-5 (Version None)
Quarter: 2006Q1

REPORT INFORMATION
  Report Type: 
  Country: None (occurrence: None)
  Receive Date: 20060328
  Receipt Date: 20060313
  Transmission Date: 20060701
  Serious: Yes (Other)
  Sender: FDA-Public Use
  Company Number: 2006AD000016

PATIENT
  Age: 68 Year
  Sex: Female

DRUGS (16)
  1. CEPHALEXIN [Suspect]
     Indication: CYSTITIS
     Dosage: 250 MG; UNK PO
     Route: 048
     Dates: start: 20050119, end: 20060126
  2. DICLOFENAC [Concomitant]
  3. FLUOXETINE HCL [Concomitant]
  4. LOSARTAN POTASSIUM [Concomitant]
  5. DIHYDROCODEINE [Concomitant]
  6. DOMPERIDONE [Concomitant]
  7. TEMAZEPAM [Concomitant]
  8. HYPROMELLOSE [Concomitant]
  9. DETRUSITOL [Concomitant]
  10. FRUSEMIDE [Concomitant]
  11. PRAMIPEXOLE DIHYDROCHLORIDE [Concomitant]
  12. SULTRIN [Concomitant]
  13. SINEMET [Concomitant]
  14. GABAPENTIN [Concomitant]
  15. ORAMORPH SR [Concomitant]
  16. MST CONTINUS ^NAPP^ [Concomitant]

REACTIONS (1)
  - VASCULITIS [None]
